FAERS Safety Report 5576976-6 (Version None)
Quarter: 2007Q4

REPORT INFORMATION
  Report Type: 
  Country: None (occurrence: None)
  Receive Date: 20071228
  Receipt Date: 20071220
  Transmission Date: 20080405
  Serious: Yes (Hospitalization)
  Sender: FDA-Public Use
  Company Number: IL-AVENTIS-200721519GDDC

PATIENT
  Age: 45 Year
  Sex: Male

DRUGS (7)
  1. LANTUS [Suspect]
     Route: 058
     Dates: start: 20070910
  2. OPTIPEN (INSULIN PUMP) [Suspect]
     Route: 058
  3. ASPIRIN [Concomitant]
     Route: 048
  4. UNKNOWN DRUG [Concomitant]
     Route: 048
  5. NIFEDIN [Concomitant]
     Route: 048
  6. CAPOTEN [Concomitant]
     Route: 048
  7. GLUCOPHAGE [Concomitant]
     Route: 048

REACTIONS (1)
  - CEREBROVASCULAR ACCIDENT [None]
